FAERS Safety Report 5672381-2 (Version None)
Quarter: 2008Q1

REPORT INFORMATION
  Report Type: 
  Country: None (occurrence: None)
  Receive Date: 20080319
  Receipt Date: 20080310
  Transmission Date: 20080703
  Serious: Yes (Disabling, Other)
  Sender: FDA-Public Use
  Company Number: PHBS2008HU02865

PATIENT
  Age: 41 Year
  Sex: Female

DRUGS (3)
  1. BETALOC [Concomitant]
     Dosage: 25 MG, UNK
  2. GLEEVEC [Suspect]
     Indication: CHRONIC MYELOID LEUKAEMIA
     Dosage: 600 MG/DAY
     Route: 048
     Dates: start: 20010122, end: 20070901
  3. GLEEVEC [Suspect]
     Route: 048

REACTIONS (4)
  - ANAL FISTULA [None]
  - ANORECTAL DISCOMFORT [None]
  - CROHN'S DISEASE [None]
  - PERIANAL ABSCESS [None]
